FAERS Safety Report 7030463-7 (Version None)
Quarter: 2010Q4

REPORT INFORMATION
  Report Type: 
  Country: None (occurrence: None)
  Receive Date: 20101006
  Receipt Date: 20101004
  Transmission Date: 20110411
  Serious: Yes (Hospitalization)
  Sender: FDA-Public Use
  Company Number: US-CEPHALON-2010005257

PATIENT
  Sex: Male
  Weight: 104 kg

DRUGS (3)
  1. FENTORA [Suspect]
     Indication: PAIN
     Route: 002
     Dates: start: 20040101
  2. OXYCONTIN [Concomitant]
     Indication: PAIN
  3. ROXICODONE [Concomitant]
     Indication: PAIN

REACTIONS (1)
  - CROHN'S DISEASE [None]
